FAERS Safety Report 5060675-3 (Version None)
Quarter: 2006Q3

REPORT INFORMATION
  Report Type: 
  Country: None (occurrence: None)
  Receive Date: 20060719
  Receipt Date: 20060719
  Transmission Date: 20061208
  Serious: No
  Sender: FDA-Public Use
  Company Number: None

PATIENT
  Sex: Female
  Weight: 66 kg

DRUGS (1)
  1. SODIUM PHOSPHATES [Suspect]
     Indication: COLONOSCOPY
     Dosage: 3 OZ 1 X ONLY PO
     Route: 048
     Dates: start: 20021024, end: 20021024

REACTIONS (1)
  - BLOOD CREATININE INCREASED [None]
